FAERS Safety Report 13285444 (Version 1)
Quarter: 2017Q1

REPORT INFORMATION
  Report Type: Spontaneous
  Country: US (occurrence: US)
  Receive Date: 20170302
  Receipt Date: 20170302
  Transmission Date: 20170428
  Serious: Yes (Other)
  Sender: FDA-Public Use
  Company Number: None

PATIENT
  Age: 3 Year
  Sex: Male
  Weight: 27 kg

DRUGS (2)
  1. CHILDREN^S MULTIVITAMIN AND PROBIOTIC [Concomitant]
  2. MIRALAX [Suspect]
     Active Substance: POLYETHYLENE GLYCOL 3350
     Indication: CONSTIPATION
     Route: 048
     Dates: start: 20121201, end: 20130301

REACTIONS (3)
  - Abnormal behaviour [None]
  - Dysuria [None]
  - Aggression [None]

NARRATIVE: CASE EVENT DATE: 20121201
